FAERS Safety Report 6926044-3 (Version None)
Quarter: 2010Q3

REPORT INFORMATION
  Report Type: 
  Country: None (occurrence: None)
  Receive Date: 20100816
  Receipt Date: 20100727
  Transmission Date: 20110219
  Serious: Yes (Hospitalization)
  Sender: FDA-Public Use
  Company Number: US-BAYER-201023264NA

PATIENT
  Age: 39 Year
  Sex: Female
  Weight: 64 kg

DRUGS (5)
  1. YAZ [Suspect]
     Indication: CONTRACEPTION
     Route: 048
     Dates: start: 20070301, end: 20070601
  2. NEXIUM [Concomitant]
  3. ATIVAN [Concomitant]
  4. PAXIL [Concomitant]
  5. UNKNOWN DRUG [Concomitant]
     Indication: ANXIETY

REACTIONS (3)
  - MENTAL DISORDER [None]
  - PULMONARY EMBOLISM [None]
  - THROMBOSIS [None]
